FAERS Safety Report 10449843 (Version 2)
Quarter: 2014Q4

REPORT INFORMATION
  Report Type: Spontaneous
  Country: US (occurrence: US)
  Receive Date: 20140912
  Receipt Date: 20141027
  Transmission Date: 20150528
  Serious: Yes (Hospitalization, Other)
  Sender: FDA-Public Use
  Company Number: US-INCYTE CORPORATION-2014IN002109

PATIENT
  Age: 85 Year
  Sex: Female
  Weight: 51 kg

DRUGS (12)
  1. CALCITROL                          /00508501/ [Concomitant]
     Active Substance: CALCIUM CARBONATE\ERGOCALCIFEROL\RETINOL
  2. TUMS                               /00193601/ [Concomitant]
     Active Substance: CALCIUM CARBONATE\MAGNESIUM CARBONATE\MAGNESIUM TRISILICATE
  3. ALLOPURINOL. [Concomitant]
     Active Substance: ALLOPURINOL
  4. JAKAFI [Suspect]
     Active Substance: RUXOLITINIB
     Indication: MYELOFIBROSIS
     Dosage: 10 MG, BID
     Route: 048
     Dates: start: 20130920
  5. ANASTROZOLE. [Concomitant]
     Active Substance: ANASTROZOLE
  6. PROBIOTIC                          /06395501/ [Concomitant]
  7. TYLENOL EXTRA STRENGTH [Concomitant]
     Active Substance: ACETAMINOPHEN
  8. FERROUS SULFATE [Concomitant]
     Active Substance: FERROUS SULFATE\FERROUS SULFATE, DRIED
  9. MACROBID [Concomitant]
     Active Substance: NITROFURANTOIN\NITROFURANTOIN MONOHYDRATE
  10. LEVOTHYROXINE [Concomitant]
     Active Substance: LEVOTHYROXINE
  11. FAMCICLOVIR. [Concomitant]
     Active Substance: FAMCICLOVIR
  12. MULTIVITAMIN                       /00097801/ [Concomitant]
     Active Substance: VITAMINS

REACTIONS (6)
  - Atrial fibrillation [Unknown]
  - Ventricular extrasystoles [Unknown]
  - Urinary tract infection [Recovering/Resolving]
  - Blood thyroid stimulating hormone decreased [Unknown]
  - Splenomegaly [Unknown]
  - Cellulitis [Recovering/Resolving]

NARRATIVE: CASE EVENT DATE: 20140717
